FAERS Safety Report 17308358 (Version 6)
Quarter: 2020Q3

REPORT INFORMATION
  Report Type: Spontaneous
  Country: BE (occurrence: BE)
  Receive Date: 20200123
  Receipt Date: 20200722
  Transmission Date: 20201102
  Serious: Yes (Other)
  Sender: FDA-Public Use
  Company Number: BE-ASTELLAS-2020US002294

PATIENT
  Age: 48 Year
  Sex: Female

DRUGS (3)
  1. PROGRAFT [Suspect]
     Active Substance: TACROLIMUS
     Indication: RENAL TRANSPLANT
     Route: 048
     Dates: start: 20191031
  2. MODIGRAF [Suspect]
     Active Substance: TACROLIMUS
     Indication: RENAL TRANSPLANT
     Dosage: 4 MG [2X2 MG (+/? 5 MG)], ONCE DAILY
     Route: 048
     Dates: start: 20200127
  3. TACROLIMUS. [Concomitant]
     Active Substance: TACROLIMUS
     Indication: PRODUCT USED FOR UNKNOWN INDICATION
     Dosage: UNK UNK, UNKNOWN FREQ.
     Route: 042
     Dates: start: 20190901, end: 20191029

REACTIONS (3)
  - Off label use [Unknown]
  - Short-bowel syndrome [Not Recovered/Not Resolved]
  - Wrong technique in product usage process [Unknown]
